FAERS Safety Report 8282293-6 (Version None)
Quarter: 2012Q2

REPORT INFORMATION
  Report Type: 
  Country: None (occurrence: None)
  Receive Date: 20120413
  Receipt Date: 20120403
  Transmission Date: 20120825
  Serious: Yes (Other)
  Sender: FDA-Public Use
  Company Number: US-JNJFOC-20120401675

PATIENT
  Sex: Male
  Weight: 85.28 kg

DRUGS (6)
  1. VITAMIN D [Concomitant]
     Indication: VITAMIN D DEFICIENCY
     Route: 048
     Dates: start: 20120301
  2. REMICADE [Suspect]
     Indication: CROHN'S DISEASE
     Route: 042
     Dates: start: 20120319
  3. LIALDA [Concomitant]
     Indication: CROHN'S DISEASE
     Route: 048
     Dates: start: 20120301
  4. REMICADE [Suspect]
     Indication: ANKYLOSING SPONDYLITIS
     Route: 042
     Dates: start: 20120319
  5. TRAMADOL HCL [Concomitant]
     Indication: BACK PAIN
     Route: 048
     Dates: start: 20120301
  6. FOLIC ACID [Concomitant]
     Dates: start: 20120301

REACTIONS (3)
  - DIPLOPIA [None]
  - RASH [None]
  - MIGRAINE [None]
